FAERS Safety Report 10557569 (Version 2)
Quarter: 2015Q2

REPORT INFORMATION
  Report Type: Spontaneous
  Country: JP (occurrence: JP)
  Receive Date: 20141031
  Receipt Date: 20150602
  Transmission Date: 20150821
  Serious: Yes (Hospitalization)
  Sender: FDA-Public Use
  Company Number: JP-WATSON-2014-23567

PATIENT
  Age: 67 Year
  Sex: Male

DRUGS (9)
  1. CRAVIT [Concomitant]
     Active Substance: LEVOFLOXACIN
     Indication: INFECTION PROPHYLAXIS
     Dosage: UNK, UNKNOWN
     Route: 048
     Dates: start: 20140925, end: 20140930
  2. TALION [Concomitant]
     Active Substance: BEPOTASTINE
     Indication: DERMATITIS
     Dosage: UNK, UNKNOWN
     Route: 048
     Dates: start: 20140918, end: 20140930
  3. VOLTAREN [Concomitant]
     Active Substance: DICLOFENAC SODIUM
     Indication: CALCULUS URETERIC
     Dosage: UNK, UNKNOWN
     Route: 054
     Dates: start: 20140922, end: 20140930
  4. COSPANON [Concomitant]
     Active Substance: FLOPROPIONE
     Indication: CALCULUS URETERIC
     Dosage: UNK
     Route: 048
     Dates: start: 20140922, end: 20140930
  5. DERMOVATE [Concomitant]
     Active Substance: CLOBETASOL
     Indication: DERMATITIS
     Dosage: UNK, UNKNOWN
     Route: 003
     Dates: start: 20140918, end: 20140930
  6. RAPAFLO [Suspect]
     Active Substance: SILODOSIN
     Indication: DYSURIA
     Dosage: UNK, UNKNOWN
     Route: 048
     Dates: start: 20140922, end: 20140929
  7. UROCALUN [Concomitant]
     Active Substance: QUERCUS SALICINA STEM
     Indication: CALCULUS URETERIC
     Dosage: UNK, UNKNOWN
     Route: 048
     Dates: start: 20140922, end: 20140930
  8. ALLELOCK [Concomitant]
     Active Substance: OLOPATADINE HYDROCHLORIDE
     Indication: DERMATITIS
     Dosage: UNK, UNKNOWN
     Route: 048
     Dates: start: 20140918, end: 20140930
  9. THIATON [Concomitant]
     Active Substance: TIQUIZIUM BROMIDE
     Indication: CALCULUS URETERIC
     Dosage: UNK, UNKNOWN
     Route: 048
     Dates: start: 20140922, end: 20140930

REACTIONS (5)
  - Pyrexia [None]
  - Dermatitis [None]
  - Viral infection [None]
  - Platelet count decreased [Recovered/Resolved]
  - Calculus ureteric [None]

NARRATIVE: CASE EVENT DATE: 20140925
